FAERS Safety Report 6701159-3 (Version None)
Quarter: 2010Q2

REPORT INFORMATION
  Report Type: 
  Country: None (occurrence: None)
  Receive Date: 20100428
  Receipt Date: 20100422
  Transmission Date: 20101027
  Serious: Yes (Hospitalization)
  Sender: FDA-Public Use
  Company Number: FR-MERCK-1004FRA00105

PATIENT
  Age: 83 Year
  Sex: Male

DRUGS (9)
  1. JANUVIA [Suspect]
     Indication: TYPE 2 DIABETES MELLITUS
     Route: 048
     Dates: end: 20100224
  2. REPAGLINIDE [Suspect]
     Route: 048
     Dates: start: 20100101, end: 20100224
  3. REPAGLINIDE [Suspect]
     Route: 048
     Dates: start: 20100228
  4. BISOPROLOL FUMARATE [Concomitant]
     Route: 065
  5. AMIODARONE HYDROCHLORIDE [Concomitant]
     Route: 065
  6. ATORVASTATIN CALCIUM [Concomitant]
     Route: 065
  7. PERINDOPRIL ARGININE [Concomitant]
     Route: 065
  8. RILMENIDINE PHOSPHATE [Concomitant]
     Route: 065
  9. AMLODIPINE BESYLATE [Concomitant]
     Route: 065

REACTIONS (1)
  - HYPOGLYCAEMIA [None]
